FAERS Safety Report 8547941-1 (Version None)
Quarter: 2012Q3

REPORT INFORMATION
  Report Type: 
  Country: None (occurrence: None)
  Receive Date: 20120728
  Receipt Date: 20110309
  Transmission Date: 20120928
  Serious: Yes (Hospitalization)
  Sender: FDA-Public Use
  Company Number: US-ELI_LILLY_AND_COMPANY-US201103003225

PATIENT
  Sex: Male
  Weight: 117.46 kg

DRUGS (1)
  1. CLOPIDOGREL [Suspect]
     Dates: start: 20110215

REACTIONS (1)
  - HOSPITALISATION [None]
